FAERS Safety Report 22189928 (Version 6)
Quarter: 2023Q2

REPORT INFORMATION
  Report Type: Spontaneous
  Country: CA (occurrence: CA)
  Receive Date: 20230410
  Receipt Date: 20230629
  Transmission Date: 20230722
  Serious: Yes (Other)
  Sender: FDA-Public Use
  Company Number: CA-CELLTRION INC.-2023CA004517

PATIENT

DRUGS (21)
  1. INFLECTRA [Suspect]
     Active Substance: INFLIXIMAB-DYYB
     Indication: Colitis ulcerative
     Dosage: 217 MG, EVERY 8 WEEKS
     Route: 042
     Dates: start: 20220922, end: 20221229
  2. INFLECTRA [Suspect]
     Active Substance: INFLIXIMAB-DYYB
     Indication: Crohn^s disease
     Dosage: 217 MG, EVERY 8 WEEKS
     Route: 042
     Dates: start: 20221229
  3. INFLECTRA [Suspect]
     Active Substance: INFLIXIMAB-DYYB
     Dosage: 217 MG, EVERY 8 WEEKS
     Route: 042
     Dates: start: 20230221
  4. INFLECTRA [Suspect]
     Active Substance: INFLIXIMAB-DYYB
     Dosage: 217 MG,(RESCUE DOSE) EVERY 8 WEEKS
     Route: 042
     Dates: start: 20230310
  5. INFLECTRA [Suspect]
     Active Substance: INFLIXIMAB-DYYB
     Dosage: 217 MG, RELOAD AT WEEK 0 THEN EVERY 6 WEEKS
     Route: 042
     Dates: start: 20230310
  6. INFLECTRA [Suspect]
     Active Substance: INFLIXIMAB-DYYB
     Dosage: 500 MG, WEEK 0 DOSE IN 2 DOSES
     Route: 042
     Dates: start: 20230310, end: 20230317
  7. INFLECTRA [Suspect]
     Active Substance: INFLIXIMAB-DYYB
     Dosage: 500 MG, WEEK 0 DOSE IN 2 DOSES (ADDITIONAL 283 MG, REMINDER DOSE)
     Route: 042
     Dates: start: 20230317
  8. INFLECTRA [Suspect]
     Active Substance: INFLIXIMAB-DYYB
     Dosage: 350 MG, Q 6WEEKS
     Route: 042
     Dates: start: 20230421
  9. INFLECTRA [Suspect]
     Active Substance: INFLIXIMAB-DYYB
     Dosage: 7.5 MG/KG, EVERY 6 WEEKS
     Route: 042
  10. INFLECTRA [Suspect]
     Active Substance: INFLIXIMAB-DYYB
     Dosage: 350 MG, Q 6WEEKS
     Route: 042
     Dates: start: 20230602
  11. EFFEXOR [Concomitant]
     Active Substance: VENLAFAXINE HYDROCHLORIDE
     Dosage: UNK
  12. ENTOCORT [Concomitant]
     Active Substance: BUDESONIDE
     Dosage: UNK
  13. FENTANYL [Concomitant]
     Active Substance: FENTANYL
     Dosage: 75 UG
  14. FENTANYL [Concomitant]
     Active Substance: FENTANYL
     Dosage: 25 UG
  15. FENTANYL [Concomitant]
     Active Substance: FENTANYL
     Dosage: 50 UG
  16. GABAPENTIN [Concomitant]
     Active Substance: GABAPENTIN
     Dosage: UNK
  17. MIDAZOLAM [Concomitant]
     Active Substance: MIDAZOLAM
     Dosage: 4 MG
  18. MIDAZOLAM [Concomitant]
     Active Substance: MIDAZOLAM
     Dosage: 2.5 MG
  19. MIDAZOLAM [Concomitant]
     Active Substance: MIDAZOLAM
     Dosage: 1.5 MG
  20. SERTRALINE [Concomitant]
     Active Substance: SERTRALINE HYDROCHLORIDE
     Dosage: UNK
  21. TRAZODONE [Concomitant]
     Active Substance: TRAZODONE HYDROCHLORIDE
     Dosage: UNK

REACTIONS (17)
  - Oesophageal candidiasis [Unknown]
  - Drug ineffective [Unknown]
  - Therapeutic response shortened [Unknown]
  - Drug level below therapeutic [Unknown]
  - Condition aggravated [Not Recovered/Not Resolved]
  - Malaise [Not Recovered/Not Resolved]
  - Decreased appetite [Unknown]
  - Gastrooesophageal reflux disease [Unknown]
  - Dysphagia [Unknown]
  - Gastritis [Unknown]
  - Fibrosis [Recovering/Resolving]
  - Arthralgia [Not Recovered/Not Resolved]
  - Infection [Not Recovered/Not Resolved]
  - Feeling abnormal [Not Recovered/Not Resolved]
  - Off label use [Unknown]
  - Off label use [Unknown]
  - Incorrect dose administered [Unknown]

NARRATIVE: CASE EVENT DATE: 20220922
